FAERS Safety Report 16741895 (Version 1)
Quarter: 2019Q3

REPORT INFORMATION
  Report Type: Report from Study
  Country: US (occurrence: US)
  Receive Date: 20190826
  Receipt Date: 20190826
  Transmission Date: 20191005
  Serious: Yes (Other)
  Sender: FDA-Public Use
  Company Number: US-MALLINCKRODT-T201904801

PATIENT
  Sex: Female

DRUGS (1)
  1. REPOSITORY CORTICOTROPIN INJECTION [Suspect]
     Active Substance: CORTICOTROPIN
     Indication: EYE INFLAMMATION
     Dosage: UNK
     Route: 065
     Dates: end: 2019

REACTIONS (5)
  - Hypertension [Unknown]
  - Injection site swelling [Unknown]
  - Injection site erythema [Unknown]
  - Cerebrovascular accident [Not Recovered/Not Resolved]
  - Headache [Unknown]

NARRATIVE: CASE EVENT DATE: 2019
